FAERS Safety Report 16406282 (Version 1)
Quarter: 2019Q2

REPORT INFORMATION
  Report Type: Spontaneous
  Country: GB (occurrence: GB)
  Receive Date: 20190607
  Receipt Date: 20190607
  Transmission Date: 20190711
  Serious: Yes (Death, Other)
  Sender: FDA-Public Use
  Company Number: GB-MYLANLABS-2019M1052997

PATIENT
  Age: 74 Year
  Sex: Female

DRUGS (2)
  1. CYCLIMORPH (CYCLIZINE\MORPHINE TARTRATE) [Interacting]
     Active Substance: CYCLIZINE\MORPHINE TARTRATE
     Indication: PRODUCT USED FOR UNKNOWN INDICATION
     Dosage: 0.75 MILLILITER, QD
     Route: 065
     Dates: start: 19881103, end: 19881103
  2. FENTANYL. [Suspect]
     Active Substance: FENTANYL
     Indication: PRODUCT USED FOR UNKNOWN INDICATION
     Dosage: 50X100UG, QD
     Route: 065
     Dates: start: 19881103

REACTIONS (3)
  - Potentiating drug interaction [Unknown]
  - Hypoxia [Unknown]
  - Brain oedema [Fatal]

NARRATIVE: CASE EVENT DATE: 19881103
